FAERS Safety Report 11038571 (Version 2)
Quarter: 2015Q2

REPORT INFORMATION
  Report Type: Spontaneous
  Country: US (occurrence: US)
  Receive Date: 20150416
  Receipt Date: 20150618
  Transmission Date: 20150821
  Serious: Yes (Death, Other)
  Sender: FDA-Public Use
  Company Number: US-GLAXOSMITHKLINE-US2015051264

PATIENT
  Age: 62 Year
  Sex: Male
  Weight: 68.93 kg

DRUGS (18)
  1. ATROVENT [Concomitant]
     Active Substance: IPRATROPIUM BROMIDE
  2. NEBULIZED ALBUTEROL [Concomitant]
     Active Substance: ALBUTEROL
  3. ISOSORBIDE [Concomitant]
     Active Substance: ISOSORBIDE
  4. NITROSTAT [Concomitant]
     Active Substance: NITROGLYCERIN
  5. LISINOPRIL. [Concomitant]
     Active Substance: LISINOPRIL
  6. ATORVASTATIN [Concomitant]
     Active Substance: ATORVASTATIN
  7. DIGOXIN. [Concomitant]
     Active Substance: DIGOXIN
  8. OMEPRAZOLE. [Concomitant]
     Active Substance: OMEPRAZOLE
  9. VITAMIN B1 [Concomitant]
     Active Substance: THIAMINE HYDROCHLORIDE
  10. VITAMIN C [Concomitant]
     Active Substance: ASCORBIC ACID
  11. PROMACTA [Suspect]
     Active Substance: ELTROMBOPAG OLAMINE
     Dosage: 75 MG, QD
     Route: 048
     Dates: start: 20150213, end: 20150414
  12. BUDESONIDE. [Concomitant]
     Active Substance: BUDESONIDE
  13. PROMACTA [Suspect]
     Active Substance: ELTROMBOPAG OLAMINE
     Indication: IMMUNE THROMBOCYTOPENIC PURPURA
     Dosage: 50 MG, QD
     Route: 048
     Dates: start: 20150116, end: 20150219
  14. PROAIR HFA [Concomitant]
     Active Substance: ALBUTEROL SULFATE
  15. IPRATROPIUM [Concomitant]
     Active Substance: IPRATROPIUM
  16. METFORMIN [Concomitant]
     Active Substance: METFORMIN HYDROCHLORIDE
  17. METOPROLOL [Concomitant]
     Active Substance: METOPROLOL
  18. OXYGEN. [Concomitant]
     Active Substance: OXYGEN

REACTIONS (7)
  - Lung disorder [Fatal]
  - Drug ineffective [Unknown]
  - Pneumonia [Fatal]
  - Cardiac failure congestive [Fatal]
  - Chronic obstructive pulmonary disease [Fatal]
  - Respiratory failure [Fatal]
  - Sepsis [Fatal]

NARRATIVE: CASE EVENT DATE: 20150410
